FAERS Safety Report 6577073-3 (Version None)
Quarter: 2010Q1

REPORT INFORMATION
  Report Type: 
  Country: None (occurrence: None)
  Receive Date: 20100210
  Receipt Date: 20100201
  Transmission Date: 20100710
  Serious: Yes (Hospitalization)
  Sender: FDA-Public Use
  Company Number: NL-B.I. PHARMACEUTICALS,INC./RIDGEFIELD-2010-NL-00046NL

PATIENT
  Sex: Female

DRUGS (2)
  1. SIFROL 0.088MG [Suspect]
     Indication: RESTLESS LEGS SYNDROME
  2. ANTIPSYCHOTICA MEDICATIONS [Concomitant]

REACTIONS (1)
  - MENTAL DISORDER [None]
